FAERS Safety Report 6347308-0 (Version None)
Quarter: 2009Q3

REPORT INFORMATION
  Report Type: 
  Country: None (occurrence: None)
  Receive Date: 20090910
  Receipt Date: 20090901
  Transmission Date: 20100115
  Serious: Yes (Other)
  Sender: FDA-Public Use
  Company Number: US-NOVOPROD-291190

PATIENT
  Sex: Female

DRUGS (5)
  1. ACTIVELLA 0.5/0.1 MG [Suspect]
     Indication: VULVOVAGINAL DRYNESS
     Dosage: UNKNOWN
     Route: 048
     Dates: start: 20070101
  2. ACTIVELLA 0.5/0.1 MG [Suspect]
     Indication: VULVOVAGINAL BURNING SENSATION
  3. LEXAPRO [Concomitant]
     Indication: ANXIETY
     Route: 048
     Dates: start: 20080101
  4. XANAX [Concomitant]
     Indication: SLEEP DISORDER
     Route: 048
     Dates: start: 19990101
  5. DIOVAN                             /01319601/ [Concomitant]
     Indication: HYPERTENSION
     Route: 048

REACTIONS (1)
  - CEREBROVASCULAR ACCIDENT [None]
